FAERS Safety Report 10618560 (Version 1)
Quarter: 2014Q4

REPORT INFORMATION
  Report Type: Spontaneous
  Country: US (occurrence: None)
  Receive Date: 20141125
  Receipt Date: 20141125
  Transmission Date: 20150529
  Serious: Yes (Disabling, Other)
  Sender: FDA-Public Use
  Company Number: 2014-20776

PATIENT
  Age: 68 Year
  Sex: Female

DRUGS (5)
  1. EYLEA [Suspect]
     Active Substance: AFLIBERCEPT
     Indication: AGE-RELATED MACULAR DEGENERATION
     Dosage: 40 MG/ML MILLIGRAM(S) (MILIITERS(M), UNK, INTRAOCULAR L
     Route: 031
     Dates: start: 20141114, end: 20141114
  2. ARTIFICIAL TEARS /00445101/ (HYPROMELLOSE) [Concomitant]
  3. FISH OIL?/00492901/ (COD-LIVER OIL) [Concomitant]
  4. MULTIVITAMINS (ASCORBIC ACID, ERGOCALCIFEROL, FOLIC ACID, NICOTINAMIDE, PANTHENOL, RETINOL, RIBOFLAVIN, THIAMINE HYDROCHLORIDE) [Concomitant]
     Active Substance: VITAMINS
  5. PREVACID [Concomitant]
     Active Substance: LANSOPRAZOLE

REACTIONS (4)
  - Vision blurred [None]
  - Endophthalmitis [None]
  - Eye pain [None]
  - Blindness [None]

NARRATIVE: CASE EVENT DATE: 20141116
